FAERS Safety Report 9523801 (Version 2)
Quarter: 2013Q3

REPORT INFORMATION
  Report Type: Spontaneous
  Country: NL (occurrence: NL)
  Receive Date: 20130916
  Receipt Date: 20130927
  Transmission Date: 20140515
  Serious: Yes (Death)
  Sender: FDA-Public Use
  Company Number: NL-AMGEN-NLDSP2013064057

PATIENT
  Age: 51 Year
  Sex: Female

DRUGS (15)
  1. XGEVA [Suspect]
     Indication: PROPHYLAXIS
     Dosage: 120 UNK, Q4WK
     Route: 065
     Dates: start: 20130226
  2. AMITRIPTYLINE HCL [Concomitant]
     Dosage: 25 MG, UNK
  3. FENTANYL [Concomitant]
     Dosage: 50 MUG/ HOUR
  4. OXYNORM [Concomitant]
     Dosage: 5 MG, UNK
  5. OXYCONTIN [Concomitant]
     Dosage: 10 MG, UNK
  6. DEXAMETHASON                       /00016001/ [Concomitant]
     Dosage: 0.5 MG, UNK
  7. PRIMOLUT N [Concomitant]
     Dosage: 5 MG, UNK
  8. HYDROCOBAMINE [Concomitant]
     Dosage: 500 MUG/ML, UNK
  9. MICROLAX                           /00285401/ [Concomitant]
     Dosage: 5 ML, UNK
  10. EMEND                              /01627301/ [Concomitant]
     Dosage: 1 X125 MG/ 2 X 80MG
  11. METOCLOPRAMIDE HCL [Concomitant]
     Dosage: 10 MG, UNK
  12. OMEPRAZ [Concomitant]
     Dosage: 20 MG, UNK
  13. CALCI CHEW D3 [Concomitant]
     Dosage: 500 MG/ 400 IE
  14. LAXTRA [Concomitant]
  15. FOLIC ACID [Concomitant]
     Dosage: 0.5 MG, UNK

REACTIONS (1)
  - Death [Fatal]
